FAERS Safety Report 8866916 (Version 1)
Quarter: 2012Q4

REPORT INFORMATION
  Report Type: 
  Country: US (occurrence: US)
  Receive Date: 20121025
  Receipt Date: 20121025
  Transmission Date: 20130627
  Serious: No
  Sender: FDA-Public Use
  Company Number: US-AMGEN-USASP2012013966

PATIENT
  Age: 70 Year
  Sex: Male

DRUGS (1)
  1. ENBREL [Suspect]
     Indication: RHEUMATOID ARTHRITIS
     Dosage: 25 mg, 2 times/wk
     Route: 058
     Dates: start: 20030321

REACTIONS (5)
  - Nephrolithiasis [Unknown]
  - Hypoaesthesia [Unknown]
  - Nail discolouration [Unknown]
  - Sensation of heaviness [Unknown]
  - Paraesthesia [Unknown]
